FAERS Safety Report 15781232 (Version 1)
Quarter: 2019Q1

REPORT INFORMATION
  Report Type: Spontaneous
  Country: US (occurrence: US)
  Receive Date: 20190102
  Receipt Date: 20190102
  Transmission Date: 20190417
  Serious: No
  Sender: FDA-Public Use
  Company Number: US-SA-2018SA393809

PATIENT
  Age: 63 Year
  Sex: Male

DRUGS (1)
  1. ADLYXIN [Suspect]
     Active Substance: LIXISENATIDE
     Dosage: UNK, UNK
     Route: 065

REACTIONS (1)
  - Product dose omission [Unknown]
